FAERS Safety Report 24283600 (Version 3)
Quarter: 2024Q3

REPORT INFORMATION
  Report Type: Spontaneous
  Country: DE (occurrence: DE)
  Receive Date: 20240904
  Receipt Date: 20240930
  Transmission Date: 20241017
  Serious: Yes (Hospitalization, Other)
  Sender: MERCK
  Company Number: DE-BENDALISSI-1539

PATIENT
  Age: 62 Year
  Sex: Female

DRUGS (4)
  1. PEMBROLIZUMAB [Suspect]
     Active Substance: PEMBROLIZUMAB
     Indication: Lung adenocarcinoma
     Dosage: ADDED TO THE CHEMOTHERAPY WITH PEMETREXED AND CARBOPLATIN FROM THE 2ND CYCLE ONWARDS
  2. PEMETREXED [Suspect]
     Active Substance: PEMETREXED
     Indication: Lung adenocarcinoma
     Dosage: 3 CYCLES
     Dates: start: 202204
  3. CARBOPLATIN [Suspect]
     Active Substance: CARBOPLATIN
     Indication: Lung adenocarcinoma
     Dosage: 3 CYCLES
     Dates: start: 202204
  4. LEVOTHYROXINE [Concomitant]
     Active Substance: LEVOTHYROXINE\LEVOTHYROXINE SODIUM
     Indication: Hypothyroidism

REACTIONS (3)
  - Anaemia [Recovered/Resolved]
  - Treatment failure [Unknown]
  - Treatment delayed [Unknown]
